FAERS Safety Report 6993410-X (Version None)
Quarter: 2010Q3

REPORT INFORMATION
  Report Type: 
  Country: None (occurrence: None)
  Receive Date: 20100917
  Receipt Date: 20100504
  Transmission Date: 20110219
  Serious: No
  Sender: FDA-Public Use
  Company Number: US-ASTRAZENECA-2010SE20168

PATIENT
  Age: 21 Year
  Sex: Female
  Weight: 90.7 kg

DRUGS (1)
  1. SEROQUEL [Suspect]
     Indication: BIPOLAR DISORDER
     Route: 048
     Dates: start: 20060101

REACTIONS (3)
  - AMENORRHOEA [None]
  - NAUSEA [None]
  - WEIGHT INCREASED [None]
